FAERS Safety Report 6296979-6 (Version None)
Quarter: 2009Q3

REPORT INFORMATION
  Report Type: 
  Country: None (occurrence: None)
  Receive Date: 20090804
  Receipt Date: 20090721
  Transmission Date: 20100115
  Serious: Yes (Hospitalization)
  Sender: FDA-Public Use
  Company Number: US-ELI_LILLY_AND_COMPANY-US200809000879

PATIENT
  Age: 76 Year
  Sex: Female

DRUGS (4)
  1. SYMBYAX [Interacting]
     Indication: BIPOLAR DISORDER
     Dosage: 1 D/F, QOD
     Dates: start: 20071212
  2. PROZAC [Suspect]
  3. CATAPRES /UNK/ [Concomitant]
  4. BETA BLOCKING AGENTS [Concomitant]

REACTIONS (15)
  - ACTIVITIES OF DAILY LIVING IMPAIRED [None]
  - BITE [None]
  - BRUXISM [None]
  - DELIRIUM [None]
  - DRUG INTERACTION [None]
  - FEAR [None]
  - FEELING ABNORMAL [None]
  - HALLUCINATION, VISUAL [None]
  - HYPERSOMNIA [None]
  - INJURY [None]
  - LOSS OF CONSCIOUSNESS [None]
  - NIGHTMARE [None]
  - ORAL PAIN [None]
  - PANIC ATTACK [None]
  - POISONING [None]
